FAERS Safety Report 7508320-9 (Version None)
Quarter: 2011Q2

REPORT INFORMATION
  Report Type: 
  Country: None (occurrence: None)
  Receive Date: 20110421
  Receipt Date: 20110414
  Transmission Date: 20111010
  Serious: Yes (Other)
  Sender: FDA-Public Use
  Company Number: SPV1-2010-01371

PATIENT
  Age: 5 Year
  Sex: Female

DRUGS (1)
  1. VYVANSE [Suspect]
     Indication: ATTENTION DEFICIT/HYPERACTIVITY DISORDER
     Dosage: 20MG DAILY, ORAL
     Route: 048

REACTIONS (7)
  - SEDATION [None]
  - HEADACHE [None]
  - OFF LABEL USE [None]
  - SINUS TACHYCARDIA [None]
  - SPEECH DISORDER [None]
  - ABDOMINAL PAIN UPPER [None]
  - DYSKINESIA [None]
